FAERS Safety Report 5169405-8 (Version None)
Quarter: 2006Q4

REPORT INFORMATION
  Report Type: 
  Country: None (occurrence: None)
  Receive Date: 20061201
  Receipt Date: 20061120
  Transmission Date: 20070319
  Serious: Yes (Hospitalization)
  Sender: FDA-Public Use
  Company Number: 2006-05881

PATIENT
  Age: 67 Year
  Sex: Female

DRUGS (2)
  1. CHLOROQUINE [Suspect]
     Indication: RHEUMATOID ARTHRITIS
     Dosage: 250 MG, DAILY, ORAL
     Route: 048
     Dates: start: 19860101, end: 20060101
  2. INDOMETHACIN [Concomitant]

REACTIONS (1)
  - CARDIOMYOPATHY [None]
